FAERS Safety Report 18103932 (Version 2)
Quarter: 2020Q3

REPORT INFORMATION
  Report Type: Spontaneous
  Country: US (occurrence: US)
  Receive Date: 20200803
  Receipt Date: 20200826
  Transmission Date: 20201103
  Serious: No
  Sender: FDA-Public Use
  Company Number: US-PFIZER INC-2020254350

PATIENT
  Age: 89 Year
  Sex: Male

DRUGS (2)
  1. XELJANZ [Suspect]
     Active Substance: TOFACITINIB CITRATE
     Indication: T-CELL LYMPHOMA
     Dosage: 5 MG, 2X/DAY
     Route: 048
     Dates: start: 20200625
  2. XELJANZ [Suspect]
     Active Substance: TOFACITINIB CITRATE
     Indication: LEUKAEMIA

REACTIONS (2)
  - Product use in unapproved indication [Unknown]
  - Off label use [Unknown]

NARRATIVE: CASE EVENT DATE: 20200625
